FAERS Safety Report 5340708-7 (Version None)
Quarter: 2007Q2

REPORT INFORMATION
  Report Type: 
  Country: None (occurrence: None)
  Receive Date: 20070405
  Receipt Date: 20061218
  Transmission Date: 20071010
  Serious: No
  Sender: FDA-Public Use
  Company Number: US200612003008

PATIENT
  Age: 56 Year
  Sex: Female

DRUGS (3)
  1. CYMBALTA [Suspect]
     Indication: DEPRESSION
     Dosage: 20 MG, EACH MORNING, ORAL, 40 MG, EACH EVENING, ORAL
     Route: 048
  2. NEURONTIN [Concomitant]
  3. TOPAMAX /AUS? (TOPIRAMATE) [Concomitant]

REACTIONS (1)
  - MIGRAINE [None]
